FAERS Safety Report 18615790 (Version 5)
Quarter: 2021Q2

REPORT INFORMATION
  Report Type: Spontaneous
  Country: JP (occurrence: JP)
  Receive Date: 20201215
  Receipt Date: 20210524
  Transmission Date: 20210717
  Serious: Yes (Death, Hospitalization, Other)
  Sender: FDA-Public Use
  Company Number: JP-009507513-2012JPN000883J

PATIENT
  Age: 83 Year
  Sex: Female
  Weight: 67 kg

DRUGS (13)
  1. KEYTRUDA [Suspect]
     Active Substance: PEMBROLIZUMAB
     Indication: BLADDER CANCER STAGE IV
  2. AMLODIPINE BESILATE [Concomitant]
     Active Substance: AMLODIPINE BESYLATE
     Dosage: 5 MILLIGRAM A DAY
     Route: 065
  3. DENOTAS [Concomitant]
     Active Substance: CALCIUM CARBONATE\CHOLECALCIFEROL\MAGNESIUM CARBONATE
     Dosage: 2 DOSAGE FORM A DAY
     Route: 065
  4. URSODEOXYCHOLIC ACID [Concomitant]
     Active Substance: URSODIOL
     Indication: HEPATIC ENZYME INCREASED
     Dosage: 300 MILLIGRAM
     Route: 065
  5. PARACETAMOL [Concomitant]
     Active Substance: ACETAMINOPHEN
     Dosage: 1300 MILLIGRAM A DAY
     Route: 048
  6. GLUTATHIONE [Concomitant]
     Active Substance: GLUTATHIONE
     Indication: HEPATIC ENZYME INCREASED
     Dosage: 150 MILLIGRAM
     Route: 065
  7. KEYTRUDA [Suspect]
     Active Substance: PEMBROLIZUMAB
     Indication: URETERIC CANCER
  8. MIROGABALIN BESILATE [Concomitant]
     Dosage: 20 MILLIGRAM A DAY
     Route: 065
  9. LAFUTIDINE [Concomitant]
     Active Substance: LAFUTIDINE
     Dosage: 20 MILLIGRAM A DAY
     Route: 065
  10. TRAMADOL HYDROCHLORIDE. [Concomitant]
     Active Substance: TRAMADOL HYDROCHLORIDE
     Dosage: 37.5 MILLIGRAM
     Route: 048
  11. FUROSEMIDE. [Concomitant]
     Active Substance: FUROSEMIDE
     Dosage: 20 MILLIGRAM A DAY
     Route: 065
  12. KEYTRUDA [Suspect]
     Active Substance: PEMBROLIZUMAB
     Indication: TRANSITIONAL CELL CANCER OF THE RENAL PELVIS AND URETER
     Dosage: 200 MILLIGRAM, Q3W
     Route: 041
  13. CELECOXIB. [Concomitant]
     Active Substance: CELECOXIB
     Dosage: 200 MILLIGRAM A DAY
     Route: 065

REACTIONS (3)
  - Malignant neoplasm progression [Fatal]
  - Hepatic failure [Recovering/Resolving]
  - Immune-mediated hepatitis [Recovering/Resolving]
